FAERS Safety Report 6040695-2 (Version None)
Quarter: 2009Q1

REPORT INFORMATION
  Report Type: 
  Country: None (occurrence: None)
  Receive Date: 20090116
  Receipt Date: 20080609
  Transmission Date: 20090719
  Serious: No
  Sender: FDA-Public Use
  Company Number: US-BRISTOL-MYERS SQUIBB COMPANY-14181507

PATIENT
  Age: 9 Year
  Sex: Female

DRUGS (2)
  1. ABILIFY [Suspect]
     Indication: ABNORMAL BEHAVIOUR
     Route: 048
     Dates: start: 20061110
  2. STRATTERA [Suspect]

REACTIONS (2)
  - CYANOSIS [None]
  - PERIPHERAL COLDNESS [None]
